FAERS Safety Report 24819642 (Version 1)
Quarter: 2025Q1

REPORT INFORMATION
  Report Type: Spontaneous
  Country: GB (occurrence: GB)
  Receive Date: 20250108
  Receipt Date: 20250108
  Transmission Date: 20250409
  Serious: Yes (Other)
  Sender: TEVA
  Company Number: GB-MHRA-TPP18865663C11288977YC1735576889224

PATIENT
  Age: 66 Year
  Sex: Female
  Weight: 81 kg

DRUGS (16)
  1. DOXYCYCLINE [Suspect]
     Active Substance: DOXYCYCLINE
     Indication: Ill-defined disorder
     Dosage: TWO NOW THEN ONE DAILY
     Route: 065
     Dates: start: 20241226
  2. COCODAMOL [Concomitant]
     Active Substance: ACETAMINOPHEN\CODEINE PHOSPHATE
     Indication: Ill-defined disorder
     Dosage: TAKE TWO 4 TIMES/DAY
     Route: 065
     Dates: start: 20240710
  3. COHESIVE SLIMS [Concomitant]
     Indication: Ill-defined disorder
     Route: 065
     Dates: start: 20241002, end: 20241030
  4. WELLAND AURA 2 [Concomitant]
     Indication: Ill-defined disorder
     Route: 065
     Dates: start: 20241002, end: 20241030
  5. QUININE SULFATE [Concomitant]
     Active Substance: QUININE SULFATE
     Indication: Ill-defined disorder
     Dosage: ONE TABLET DAILY AT NIGHT
     Route: 065
     Dates: start: 20240925
  6. ATORVASTATIN [Concomitant]
     Active Substance: ATORVASTATIN
     Indication: Ill-defined disorder
     Dosage: TAKE ONE DAILY
     Route: 065
     Dates: start: 20240625
  7. ESTRADIOL [Concomitant]
     Active Substance: ESTRADIOL
     Indication: Ill-defined disorder
     Dosage: 4 ACTUATIONS ONCE DAILY
     Route: 065
     Dates: start: 20240205
  8. AMITRIPTYLINE HYDROCHLORIDE [Concomitant]
     Active Substance: AMITRIPTYLINE HYDROCHLORIDE
     Indication: Ill-defined disorder
     Dosage: 1-3 TO BE TAKEN EACH NIGHT
     Route: 065
     Dates: start: 20240415
  9. CLARITHROMYCIN [Concomitant]
     Active Substance: CLARITHROMYCIN
     Indication: Ill-defined disorder
     Dosage: TAKE ONE TABLET TWICE DAILY FOR 5 DAYS
     Route: 065
     Dates: start: 20241230
  10. ULTRAFRAME [Concomitant]
     Indication: Ill-defined disorder
     Route: 065
     Dates: start: 20241002, end: 20241030
  11. OMEPRAZOLE [Concomitant]
     Active Substance: OMEPRAZOLE
     Indication: Ill-defined disorder
     Dosage: TAKE TWO A DAY
     Route: 065
     Dates: start: 20240925
  12. EMPAGLIFLOZIN [Concomitant]
     Active Substance: EMPAGLIFLOZIN
     Indication: Ill-defined disorder
     Dosage: TAKE ONE DAILY
     Route: 065
     Dates: start: 20240611
  13. ALOGLIPTIN [Concomitant]
     Active Substance: ALOGLIPTIN
     Indication: Ill-defined disorder
     Route: 065
     Dates: start: 20240910
  14. HYLO-TEAR [Concomitant]
     Indication: Dry eye
     Route: 065
     Dates: start: 20240213
  15. CLINIMED [Concomitant]
     Indication: Ill-defined disorder
     Route: 065
     Dates: start: 20241002, end: 20241030
  16. SERTRALINE [Concomitant]
     Active Substance: SERTRALINE HYDROCHLORIDE
     Indication: Ill-defined disorder
     Dosage: TAKE ONE TWICE A DAY
     Route: 065
     Dates: start: 20240409

REACTIONS (2)
  - Gastrooesophageal reflux disease [Recovered/Resolved]
  - Gastritis [Recovered/Resolved]
